FAERS Safety Report 6302992-2 (Version None)
Quarter: 2009Q3

REPORT INFORMATION
  Report Type: 
  Country: None (occurrence: None)
  Receive Date: 20090810
  Receipt Date: 20090806
  Transmission Date: 20100115
  Serious: Yes (Hospitalization)
  Sender: FDA-Public Use
  Company Number: US-B.I. PHARMACEUTICALS,INC./RIDGEFIELD-2009-BP-09331BP

PATIENT
  Sex: Male

DRUGS (4)
  1. SPIRIVA [Suspect]
     Indication: CHRONIC OBSTRUCTIVE PULMONARY DISEASE
     Dosage: 18 MCG
     Route: 055
     Dates: start: 20040101
  2. SPIRIVA [Suspect]
     Indication: BRONCHITIS
  3. METOPROLOL [Concomitant]
     Indication: CORONARY ARTERY DISEASE
     Dates: start: 19940101
  4. LIPITOR [Concomitant]
     Indication: BLOOD CHOLESTEROL INCREASED

REACTIONS (7)
  - ABDOMINAL PAIN UPPER [None]
  - FALL [None]
  - HERPES ZOSTER [None]
  - INTESTINAL FUNCTIONAL DISORDER [None]
  - MUSCULOSKELETAL DISCOMFORT [None]
  - PNEUMONIA [None]
  - SPINAL FRACTURE [None]
